FAERS Safety Report 5171375-3 (Version None)
Quarter: 2006Q4

REPORT INFORMATION
  Report Type: 
  Country: None (occurrence: None)
  Receive Date: 20061213
  Receipt Date: 20060828
  Transmission Date: 20070319
  Serious: Yes (Hospitalization)
  Sender: FDA-Public Use
  Company Number: US-AMGEN-US191490

PATIENT
  Sex: Female
  Weight: 69 kg

DRUGS (7)
  1. ENBREL [Suspect]
     Indication: PSORIATIC ARTHROPATHY
     Route: 058
     Dates: start: 20030325
  2. METHOTREXATE [Concomitant]
     Dates: start: 19990215
  3. FOLATE SODIUM [Concomitant]
     Dates: start: 19990215
  4. SINGULAIR [Concomitant]
     Dates: start: 20050513
  5. NEXIUM [Concomitant]
     Dates: start: 20011101
  6. PREMARIN [Concomitant]
     Dates: start: 19980601
  7. LOTRISONE [Concomitant]

REACTIONS (1)
  - PANCREATITIS ACUTE [None]
